FAERS Safety Report 16985924 (Version 1)
Quarter: 2019Q4

REPORT INFORMATION
  Report Type: Spontaneous
  Country: US (occurrence: US)
  Receive Date: 20190917
  Receipt Date: 20190917
  Transmission Date: 20200122
  Serious: Yes (Death)
  Sender: FDA-Public Use
  Company Number: None

PATIENT
  Age: 72 Year
  Sex: Female

DRUGS (18)
  1. GLIMEPIRIDE. [Concomitant]
     Active Substance: GLIMEPIRIDE
  2. NYQUIL NOS [Concomitant]
     Active Substance: ACETAMINOPHEN\CHLORPHENIRAMINE\DEXTROMETHORPHAN\DIPHENHYDRAMINE\DOXYLAMINE\PSEUDOEPHEDRINE
  3. OXYCODONE [Concomitant]
     Active Substance: OXYCODONE
  4. PERCOCET [Concomitant]
     Active Substance: ACETAMINOPHEN\OXYCODONE HYDROCHLORIDE
  5. SERTRALINE [Concomitant]
     Active Substance: SERTRALINE HYDROCHLORIDE
  6. ASPIRIN. [Concomitant]
     Active Substance: ASPIRIN
  7. ALDACTONE [Concomitant]
     Active Substance: SPIRONOLACTONE
  8. ATIVAN [Concomitant]
     Active Substance: LORAZEPAM
  9. BUMETANIDE. [Concomitant]
     Active Substance: BUMETANIDE
  10. FOSAMAX [Concomitant]
     Active Substance: ALENDRONATE SODIUM
  11. MAG OXIDE [Concomitant]
     Active Substance: MAGNESIUM OXIDE
  12. SILDENAFIL, 20MG [Suspect]
     Active Substance: SILDENAFIL
  13. BUMEX [Concomitant]
     Active Substance: BUMETANIDE
  14. OXYCODONE AND ACETAMINOPHEN [Concomitant]
     Active Substance: ACETAMINOPHEN\OXYCODONE HYDROCHLORIDE
  15. PANTOPRAZOLE [Concomitant]
     Active Substance: PANTOPRAZOLE
  16. ANASTROZOLE. [Concomitant]
     Active Substance: ANASTROZOLE
  17. GABAPENTIN. [Concomitant]
     Active Substance: GABAPENTIN
  18. COLACE [Concomitant]
     Active Substance: DOCUSATE SODIUM

REACTIONS (1)
  - Death [None]
